FAERS Safety Report 7679514-7 (Version None)
Quarter: 2011Q3

REPORT INFORMATION
  Report Type: 
  Country: None (occurrence: None)
  Receive Date: 20110812
  Receipt Date: 20110802
  Transmission Date: 20111222
  Serious: Yes (Hospitalization)
  Sender: FDA-Public Use
  Company Number: FR-TEVA-295821ISR

PATIENT
  Age: 56 Year
  Sex: Male
  Weight: 90 kg

DRUGS (3)
  1. LEUCOVORIN CALCIUM [Suspect]
     Indication: GASTRIC CANCER
     Dosage: 3040 MILLIGRAM;
     Route: 042
     Dates: start: 20091228, end: 20100215
  2. IRINOTECAN HCL [Suspect]
     Indication: GASTRIC CANCER
     Dosage: 1368 MILLIGRAM;
     Route: 042
     Dates: start: 20091228, end: 20100215
  3. FLUOROURACIL [Suspect]
     Indication: GASTRIC CANCER
     Dosage: 3040 MILLIGRAM;
     Route: 042
     Dates: start: 20091228, end: 20100217

REACTIONS (1)
  - CHEST PAIN [None]
